FAERS Safety Report 23186762 (Version 1)
Quarter: 2023Q4

REPORT INFORMATION
  Report Type: Spontaneous
  Country: US (occurrence: US)
  Receive Date: 20231115
  Receipt Date: 20231115
  Transmission Date: 20240110
  Serious: No
  Sender: FDA-Public Use
  Company Number: US-SA-SAC20231113000682

PATIENT
  Age: 71 Year
  Sex: Male

DRUGS (1)
  1. DUPIXENT [Suspect]
     Active Substance: DUPILUMAB
     Indication: Nasal polyps
     Dosage: 300 MG FREQUENCY - Q OTHER WEEK
     Route: 058
     Dates: start: 202310

REACTIONS (2)
  - Nasal discomfort [Unknown]
  - Hyposmia [Unknown]

NARRATIVE: CASE EVENT DATE: 20230101
